FAERS Safety Report 8028450-5 (Version None)
Quarter: 2012Q1

REPORT INFORMATION
  Report Type: 
  Country: None (occurrence: None)
  Receive Date: 20120104
  Receipt Date: 20111223
  Transmission Date: 20120608
  Serious: Yes (Hospitalization)
  Sender: FDA-Public Use
  Company Number: 2011SP057093

PATIENT
  Age: 45 Year
  Sex: Male

DRUGS (3)
  1. PEG-INTRON [Suspect]
     Indication: HEPATITIS C
     Dosage: 120 MCG;QW;SC
     Route: 058
     Dates: start: 20111010, end: 20111209
  2. VICTRELIS [Suspect]
     Indication: HEPATITIS C
     Dosage: 400 MG;TID;PO
     Route: 048
     Dates: start: 20111010, end: 20111209
  3. REBETOL [Suspect]
     Indication: HEPATITIS C
     Dates: start: 20110101

REACTIONS (3)
  - LYMPHADENOPATHY [None]
  - PLEURAL EFFUSION [None]
  - MONOCYTOSIS [None]
